FAERS Safety Report 11278466 (Version 1)
Quarter: 2015Q3

REPORT INFORMATION
  Report Type: Report from Study
  Country: FR (occurrence: FR)
  Receive Date: 20150717
  Receipt Date: 20150717
  Transmission Date: 20151125
  Serious: Yes (Death)
  Sender: FDA-Public Use
  Company Number: FR-009507513-1507FRA007785

PATIENT
  Age: 78 Year
  Sex: Female
  Weight: 73 kg

DRUGS (2)
  1. PEMBROLIZUMAB. [Suspect]
     Active Substance: PEMBROLIZUMAB
     Dosage: TOTAL DAILY DOSE 2 MG/KG
     Route: 042
     Dates: start: 20150127, end: 20150127
  2. PEMBROLIZUMAB. [Suspect]
     Active Substance: PEMBROLIZUMAB
     Indication: METASTATIC MALIGNANT MELANOMA
     Dosage: TOTAL DAILY DOSE 2 MG/KG
     Route: 042
     Dates: start: 20150106, end: 20150106

REACTIONS (1)
  - Death [Fatal]
